FAERS Safety Report 23558686 (Version 1)
Quarter: 2024Q1

REPORT INFORMATION
  Report Type: Other
  Country: JP (occurrence: None)
  Receive Date: 20240223
  Receipt Date: 20240223
  Transmission Date: 20240410
  Serious: Yes (Other)
  Sender: FDA-Public Use
  Company Number: JP-ROCHE-3508697

PATIENT

DRUGS (1)
  1. TOCILIZUMAB [Suspect]
     Active Substance: TOCILIZUMAB
     Indication: Still^s disease
     Route: 065

REACTIONS (10)
  - Pathological fracture [Unknown]
  - Cytomegalovirus infection reactivation [Unknown]
  - Candida infection [Unknown]
  - Diabetes mellitus [Unknown]
  - Hypertension [Unknown]
  - Dyslipidaemia [Unknown]
  - Gastrointestinal ulcer [Unknown]
  - Deep vein thrombosis [Unknown]
  - Insomnia [Unknown]
  - Psychotic disorder [Unknown]
